FAERS Safety Report 7761176-1 (Version None)
Quarter: 2011Q3

REPORT INFORMATION
  Report Type: 
  Country: None (occurrence: None)
  Receive Date: 20110920
  Receipt Date: 20110912
  Transmission Date: 20111222
  Serious: Yes (Death, Hospitalization)
  Sender: FDA-Public Use
  Company Number: US-CELGENEUS-163-21880-11081232

PATIENT
  Age: 78 Year
  Sex: Male
  Weight: 87.5 kg

DRUGS (39)
  1. REVLIMID [Suspect]
     Route: 048
  2. ACETAMINOPHEN [Concomitant]
     Dosage: 650 MILLIGRAM
     Route: 048
  3. NOVOLOG [Concomitant]
     Route: 058
  4. ONDANSETRON HCL [Concomitant]
     Dosage: 4 MILLIGRAM
     Route: 041
  5. RENVELA [Concomitant]
     Dosage: 800 MILLIGRAM
     Route: 048
  6. CIPROFLOXACIN [Concomitant]
     Route: 065
  7. CALCIUM CHLORIDE [Concomitant]
     Route: 065
  8. METHYLPREDNISOLONE [Concomitant]
     Route: 065
  9. SODIUM POLYSTYRENE [Concomitant]
     Route: 065
  10. RITUXAN [Suspect]
     Dosage: 375 MILLIGRAM/SQ. METER
     Route: 041
     Dates: start: 20110801, end: 20110802
  11. PLAVIX [Concomitant]
     Dosage: 75 MILLIGRAM
     Route: 048
  12. IPRATROPIUM BROMIDE AND ALBUTEROL SULFATE [Concomitant]
     Dosage: 3 MILLILITER
     Route: 055
  13. SODIUM CHLORIDE [Concomitant]
     Dosage: 250-500ML
     Route: 041
  14. LORAZEPAM [Concomitant]
     Indication: ANXIETY
     Dosage: 0.25-0.5MG
     Route: 041
  15. LASIX [Concomitant]
     Route: 065
  16. DEXTROSE [Concomitant]
     Dosage: 12.5-25G
     Route: 041
  17. FENTANYL [Concomitant]
     Dosage: 50MCG/ML
     Route: 041
  18. LIDOCAINE [Concomitant]
     Dosage: 1 PERCENT
     Route: 065
  19. DEMEROL [Concomitant]
     Route: 065
  20. ASPIRIN [Concomitant]
     Dosage: 81 MILLIGRAM
     Route: 048
  21. SIMVASTATIN [Concomitant]
     Dosage: 20 MILLIGRAM
     Route: 048
  22. COUMADIN [Concomitant]
     Dosage: 2 MILLIGRAM
     Route: 048
  23. EPINEPHRINE [Concomitant]
     Route: 065
  24. BENDAMUSTINE [Suspect]
     Dosage: 90 MILLIGRAM/SQ. METER
     Route: 041
     Dates: start: 20110801, end: 20110802
  25. DURICEF [Suspect]
     Route: 065
  26. ALBUTEROL [Concomitant]
     Dosage: 2.5 MILLIGRAM
     Route: 055
  27. GLUCAGON [Concomitant]
     Dosage: 1 MILLIGRAM
     Route: 030
  28. ZYLOPRIM [Concomitant]
     Dosage: 200 MILLIGRAM
     Route: 065
     Dates: start: 20110802, end: 20110803
  29. OXYGEN [Concomitant]
     Indication: HYPOXIA
     Dosage: 6 LITERS
     Route: 065
     Dates: start: 20110801
  30. SODIUM CHLORIDE [Concomitant]
     Dosage: 5ML/HR
     Route: 041
  31. SODIUM CHLORIDE [Concomitant]
     Dosage: 10 MILLILITER
     Route: 041
  32. LEVOPHED [Concomitant]
     Dosage: 64 MICROGRAM
     Route: 041
     Dates: start: 20110801, end: 20110807
  33. BENADRYL [Concomitant]
     Route: 065
  34. CALCIUM ACETATE [Concomitant]
     Dosage: 1334 MILLIGRAM
     Route: 048
  35. PRILOSEC [Concomitant]
     Dosage: 20 MILLIGRAM
     Route: 048
  36. PEPCID [Concomitant]
     Route: 065
  37. FEBUXOSTAT [Concomitant]
     Dosage: 40 MILLIGRAM
     Route: 048
  38. NITROGLYCERIN [Concomitant]
     Dosage: .4 MILLIGRAM
     Route: 060
     Dates: start: 20110801
  39. HEPARIN [Concomitant]
     Route: 065

REACTIONS (3)
  - AORTIC STENOSIS [None]
  - CARDIAC FAILURE CHRONIC [None]
  - TUMOUR LYSIS SYNDROME [None]
